FAERS Safety Report 16738335 (Version 1)
Quarter: 2019Q3

REPORT INFORMATION
  Report Type: Report from Study
  Country: DE (occurrence: DE)
  Receive Date: 20190825
  Receipt Date: 20190825
  Transmission Date: 20191005
  Serious: Yes (Hospitalization)
  Sender: FDA-Public Use
  Company Number: DE-EXELIXIS-XL18419022875

PATIENT
  Age: 68 Year
  Sex: Female
  Weight: 85 kg

DRUGS (13)
  1. CABOZANTINIB [Suspect]
     Active Substance: CABOZANTINIB
     Indication: RENAL CELL CARCINOMA
     Dosage: 60 MG, QD
     Route: 048
     Dates: start: 20190614, end: 20190712
  2. BICANORM [Concomitant]
     Active Substance: SODIUM BICARBONATE
     Dosage: UNK UNK, BID
  3. UNACID [Concomitant]
     Dosage: 375 MG, BID
     Dates: start: 20190714
  4. HYDROCHLOROTHIAZIDE. [Concomitant]
     Active Substance: HYDROCHLOROTHIAZIDE
     Indication: HYPERTENSION
     Dosage: 25 MG, QD
  5. FERRO SANOL [Concomitant]
     Active Substance: FERROUS GLYCINE SULFATE
     Indication: ANAEMIA
     Dosage: 100 MG, QD
  6. CB-839 OR PLACEBO [Suspect]
     Active Substance: TELAGLENASTAT
     Indication: RENAL CELL CARCINOMA
     Dosage: 800 MG, BID
     Route: 048
     Dates: start: 20190614, end: 20190712
  7. CARVEDIOL [Concomitant]
     Active Substance: CARVEDILOL
     Indication: HYPERTENSION
     Dosage: 6.25 MG, BID
  8. RANITIC [Concomitant]
     Active Substance: RANITIDINE HYDROCHLORIDE
     Dosage: 150 MG, QD
  9. LIXIANA [Concomitant]
     Active Substance: EDOXABAN TOSYLATE
     Dosage: 30 MG, QD
  10. CANDESARTAN. [Concomitant]
     Active Substance: CANDESARTAN
     Indication: HYPERTENSION
     Dosage: 16 MG, BID
  11. CARMEN [Concomitant]
     Indication: HYPERTENSION
     Dosage: 20 MG, BID
  12. SPIRONOLAKTON [Concomitant]
     Active Substance: SPIRONOLACTONE
     Indication: HYPERTENSION
     Dosage: 25 MG, QD
  13. TEVACIDOL [Concomitant]
     Dosage: 0.25 ?G, QD

REACTIONS (2)
  - Dizziness [Recovered/Resolved]
  - Cerebellar syndrome [Recovered/Resolved]

NARRATIVE: CASE EVENT DATE: 20190715
